FAERS Safety Report 20192681 (Version 1)
Quarter: 2021Q4

REPORT INFORMATION
  Report Type: Spontaneous
  Country: US (occurrence: US)
  Receive Date: 20211216
  Receipt Date: 20211216
  Transmission Date: 20220303
  Serious: No
  Sender: FDA-Public Use
  Company Number: US-ENDO PHARMACEUTICALS INC-2021-008069

PATIENT
  Sex: Male
  Weight: 103.86 kg

DRUGS (3)
  1. XIAFLEX [Suspect]
     Active Substance: COLLAGENASE CLOSTRIDIUM HISTOLYTICUM
     Indication: Peyronie^s disease
     Dosage: UNK CYCLE 5, INJECTION 1
     Route: 065
     Dates: start: 20210427
  2. XIAFLEX [Suspect]
     Active Substance: COLLAGENASE CLOSTRIDIUM HISTOLYTICUM
     Dosage: UNKNOWN, (RECEIVED TOTAL 4 CYCLES, 8 INJECTIONS)
     Route: 065
     Dates: start: 20200721
  3. XIAFLEX [Suspect]
     Active Substance: COLLAGENASE CLOSTRIDIUM HISTOLYTICUM
     Dosage: UNK CYCLE 5, INJECTION 2
     Route: 065
     Dates: start: 20210430

REACTIONS (3)
  - Muscular weakness [Recovered/Resolved]
  - Back pain [Recovered/Resolved]
  - Intentional product use issue [Not Recovered/Not Resolved]

NARRATIVE: CASE EVENT DATE: 20210427
